FAERS Safety Report 24622947 (Version 1)
Quarter: 2024Q4

REPORT INFORMATION
  Report Type: Spontaneous
  Country: US (occurrence: US)
  Receive Date: 20241115
  Receipt Date: 20241115
  Transmission Date: 20250114
  Serious: Yes (Death, Other)
  Sender: SANDOZ
  Company Number: US-SANDOZ-SDZ2024US095116

PATIENT

DRUGS (6)
  1. ARRANON [Suspect]
     Active Substance: NELARABINE
     Indication: T-cell type acute leukaemia
     Dosage: 650 MG/M 2 DAILY X 5
     Route: 065
  2. ARRANON [Suspect]
     Active Substance: NELARABINE
     Indication: Non-Hodgkin^s lymphoma
  3. METHOTREXATE [Suspect]
     Active Substance: METHOTREXATE
     Indication: T-cell type acute leukaemia
     Dosage: HIGH DOSE
     Route: 065
  4. METHOTREXATE [Suspect]
     Active Substance: METHOTREXATE
     Indication: Non-Hodgkin^s lymphoma
  5. PREDNISONE [Concomitant]
     Active Substance: PREDNISONE
     Indication: Product used for unknown indication
     Route: 065
  6. VINCRISTINE [Concomitant]
     Active Substance: VINCRISTINE
     Indication: Product used for unknown indication
     Dosage: 1500 IU/M 2 CAPPED AT 3750 IU
     Route: 065

REACTIONS (1)
  - Acute myeloid leukaemia [Fatal]
